FAERS Safety Report 10049584 (Version 4)
Quarter: 2014Q3

REPORT INFORMATION
  Report Type: Spontaneous
  Country: JP (occurrence: JP)
  Receive Date: 20140401
  Receipt Date: 20140828
  Transmission Date: 20150326
  Serious: Yes (Other)
  Sender: FDA-Public Use
  Company Number: PHHY2014JP037900

PATIENT
  Age: 64 Year
  Sex: Female
  Weight: 48 kg

DRUGS (5)
  1. CLOZARIL [Suspect]
     Active Substance: CLOZAPINE
     Indication: SCHIZOPHRENIA
     Dosage: UKN
     Route: 048
     Dates: start: 20140115
  2. LASIX [Concomitant]
     Active Substance: FUROSEMIDE
     Indication: HYPERTENSION
     Dosage: 20 MG
     Route: 048
     Dates: end: 20140325
  3. CLOZARIL [Suspect]
     Active Substance: CLOZAPINE
     Dosage: 150 MG, DAILY
     Route: 048
     Dates: end: 20140325
  4. CLOZARIL [Suspect]
     Active Substance: CLOZAPINE
     Dosage: 37.5 MG, DAILY
     Route: 048
     Dates: start: 20140408
  5. AVAPRO [Concomitant]
     Active Substance: IRBESARTAN
     Indication: HYPERTENSION
     Dosage: 50 MG
     Route: 048
     Dates: end: 20140325

REACTIONS (8)
  - Glycosylated haemoglobin increased [Recovered/Resolved]
  - Pyrexia [Recovered/Resolved]
  - Oxygen saturation decreased [Recovered/Resolved]
  - Neutrophil count increased [Recovered/Resolved]
  - Respiratory disorder [Recovered/Resolved]
  - Lymphocyte count decreased [Recovered/Resolved]
  - Blood glucose increased [Recovered/Resolved]
  - Glucose tolerance impaired [Recovered/Resolved]

NARRATIVE: CASE EVENT DATE: 20140321
